FAERS Safety Report 21323155 (Version 2)
Quarter: 2023Q1

REPORT INFORMATION
  Report Type: Report from Study
  Country: CA (occurrence: CA)
  Receive Date: 20220912
  Receipt Date: 20230104
  Transmission Date: 20230418
  Serious: Yes (Other)
  Sender: FDA-Public Use
  Company Number: CA-TAKEDA-2022TUS061163

PATIENT
  Age: 38 Year
  Sex: Female

DRUGS (4)
  1. VEDOLIZUMAB [Suspect]
     Active Substance: VEDOLIZUMAB
     Indication: Crohn^s disease
     Dosage: 300 MILLIGRAM
     Route: 042
     Dates: start: 20220718
  2. VEDOLIZUMAB [Suspect]
     Active Substance: VEDOLIZUMAB
     Dosage: 300 MILLIGRAM
     Route: 042
     Dates: start: 20220803
  3. VEDOLIZUMAB [Suspect]
     Active Substance: VEDOLIZUMAB
     Dosage: 300 MILLIGRAM
     Route: 042
  4. VEDOLIZUMAB [Suspect]
     Active Substance: VEDOLIZUMAB
     Dosage: 300 MILLIGRAM
     Route: 042

REACTIONS (12)
  - Suicidal ideation [Unknown]
  - Faeces discoloured [Unknown]
  - Abdominal pain lower [Unknown]
  - Vertigo [Unknown]
  - Irritability [Unknown]
  - Eyelid ptosis [Unknown]
  - Cystitis interstitial [Unknown]
  - Psychotic disorder [Unknown]
  - Ear infection [Unknown]
  - Ear pain [Unknown]
  - Cystitis [Unknown]
  - Arthralgia [Unknown]
